FAERS Safety Report 8335097-X (Version None)
Quarter: 2012Q2

REPORT INFORMATION
  Report Type: 
  Country: None (occurrence: None)
  Receive Date: 20120503
  Receipt Date: 20120418
  Transmission Date: 20120825
  Serious: Yes (Other)
  Sender: FDA-Public Use
  Company Number: CN-JNJFOC-20120501563

PATIENT
  Sex: Male
  Weight: 60 kg

DRUGS (2)
  1. RISPERIDONE [Suspect]
     Indication: MENTAL DISORDER
     Route: 048
     Dates: start: 20110202, end: 20110215
  2. HALOPERIDOL [Suspect]
     Indication: PSYCHIATRIC SYMPTOM
     Route: 030

REACTIONS (2)
  - HYPERPROLACTINAEMIA [None]
  - HYPERTRIGLYCERIDAEMIA [None]
